FAERS Safety Report 13882172 (Version 1)
Quarter: 2017Q3

REPORT INFORMATION
  Report Type: Spontaneous
  Country: US (occurrence: US)
  Receive Date: 20170818
  Receipt Date: 20170818
  Transmission Date: 20171127
  Serious: No
  Sender: FDA-Public Use
  Company Number: US-BIOGEN-2017BI00446909

PATIENT
  Sex: Male

DRUGS (1)
  1. TYSABRI [Suspect]
     Active Substance: NATALIZUMAB
     Indication: MULTIPLE SCLEROSIS
     Route: 065
     Dates: start: 20120727

REACTIONS (11)
  - Somnolence [Recovered/Resolved]
  - Scar [Recovered/Resolved]
  - Hypoaesthesia [Not Recovered/Not Resolved]
  - Arthropod sting [Recovered/Resolved]
  - Memory impairment [Not Recovered/Not Resolved]
  - Arthropod bite [Recovered/Resolved]
  - Road traffic accident [Recovered/Resolved]
  - Loss of consciousness [Recovered/Resolved]
  - Fatigue [Not Recovered/Not Resolved]
  - Stress [Not Recovered/Not Resolved]
  - Joint swelling [Not Recovered/Not Resolved]
